FAERS Safety Report 12068925 (Version 2)
Quarter: 2016Q1

REPORT INFORMATION
  Report Type: Spontaneous
  Country: US (occurrence: US)
  Receive Date: 20160211
  Receipt Date: 20160216
  Transmission Date: 20160526
  Serious: No
  Sender: FDA-Public Use
  Company Number: PHEH2016US003311

PATIENT
  Age: 65 Year
  Sex: Female

DRUGS (3)
  1. VIVELLE-DOT [Suspect]
     Active Substance: ESTRADIOL
     Indication: ATROPHY
     Dosage: 0.05 MG, UNK
     Route: 062
  2. COMBIPATCH [Suspect]
     Active Substance: ESTRADIOL\NORETHINDRONE ACETATE
     Indication: ATROPHY
     Dosage: UNK
     Route: 062
  3. ATENOLOL. [Concomitant]
     Active Substance: ATENOLOL
     Indication: ARRHYTHMIA
     Dosage: UNK
     Route: 065

REACTIONS (3)
  - Incorrect route of drug administration [Unknown]
  - Hot flush [Unknown]
  - Drug ineffective [Unknown]
